FAERS Safety Report 18026623 (Version 5)
Quarter: 2020Q3

REPORT INFORMATION
  Report Type: Report from Study
  Country: US (occurrence: US)
  Receive Date: 20200716
  Receipt Date: 20200818
  Transmission Date: 20201103
  Serious: Yes (Hospitalization)
  Sender: FDA-Public Use
  Company Number: US-ROCHE-2640958

PATIENT
  Age: 63 Year
  Sex: Male
  Weight: 68 kg

DRUGS (12)
  1. BENTYL [Concomitant]
     Active Substance: DICYCLOMINE HYDROCHLORIDE
     Dates: start: 20161028
  2. CEFTRIAXONE. [Concomitant]
     Active Substance: CEFTRIAXONE
     Indication: URINARY TRACT INFECTION
     Dosage: DAILY FROM 06/JUL/2020 TO 07/JUL/2020
     Route: 042
     Dates: start: 20200706
  3. FLOMAX [Concomitant]
     Active Substance: TAMSULOSIN HYDROCHLORIDE
     Dates: start: 20190715
  4. CELEBREX [Concomitant]
     Active Substance: CELECOXIB
     Dates: start: 20190705
  5. NORVASC [Concomitant]
     Active Substance: AMLODIPINE BESYLATE
     Dates: start: 20191219, end: 20200703
  6. IMODIUM [Concomitant]
     Active Substance: LOPERAMIDE HYDROCHLORIDE
     Dates: start: 20200619
  7. POTASSIUM CHLORIDE. [Concomitant]
     Active Substance: POTASSIUM CHLORIDE
     Route: 048
     Dates: start: 20200707
  8. COBIMETINIB. [Suspect]
     Active Substance: COBIMETINIB
     Indication: COLORECTAL CANCER
     Dosage: DAY 1 ? 21 OUT OF 28?DAY SCHEDULE.?THE MOST RECENT DOSE OF COBIMETINIB PRIOR TO EVENT ONSET WAS ON 0
     Route: 048
     Dates: start: 20200616, end: 20200704
  9. LOPRESSOR [Concomitant]
     Active Substance: METOPROLOL TARTRATE
     Dates: start: 20171219
  10. OXYCODONE [Concomitant]
     Active Substance: OXYCODONE
     Dates: start: 20190107
  11. POTASSIUM PHOSPHATE [Concomitant]
     Active Substance: POTASSIUM PHOSPHATE
     Indication: HYPOPHOSPHATAEMIA
     Dates: start: 20200707
  12. POTASSIUM CHLORIDE. [Concomitant]
     Active Substance: POTASSIUM CHLORIDE
     Indication: HYPOKALAEMIA
     Dosage: DAILY FROM 04/JUL/2020 TO 05/JUL/2020
     Route: 042
     Dates: start: 20200704

REACTIONS (1)
  - Dehydration [Recovered/Resolved]

NARRATIVE: CASE EVENT DATE: 20200704
